FAERS Safety Report 5709032-4 (Version None)
Quarter: 2008Q2

REPORT INFORMATION
  Report Type: 
  Country: None (occurrence: None)
  Receive Date: 20080416
  Receipt Date: 20080416
  Transmission Date: 20081010
  Serious: Yes (Hospitalization)
  Sender: FDA-Public Use
  Company Number: None

PATIENT
  Age: 48 Year
  Sex: Male
  Weight: 86.9 kg

DRUGS (15)
  1. CETUXIMAB, 100MG, BRISTOL MYERS SQUIBB [Suspect]
     Indication: NEOPLASM MALIGNANT
     Dosage: 500 MG/M2 EVERY 2 WEEKS IV
     Route: 042
     Dates: start: 20080208
  2. CETUXIMAB, 100MG, BRISTOL MYERS SQUIBB [Suspect]
     Indication: NEOPLASM MALIGNANT
     Dosage: 500 MG/M2 EVERY 2 WEEKS IV
     Route: 042
     Dates: start: 20080222
  3. CETUXIMAB, 100MG, BRISTOL MYERS SQUIBB [Suspect]
     Indication: NEOPLASM MALIGNANT
     Dosage: 500 MG/M2 EVERY 2 WEEKS IV
     Route: 042
     Dates: start: 20080306
  4. CETUXIMAB, 100MG, BRISTOL MYERS SQUIBB [Suspect]
     Indication: NEOPLASM MALIGNANT
     Dosage: 500 MG/M2 EVERY 2 WEEKS IV
     Route: 042
     Dates: start: 20080321
  5. CETUXIMAB, 100MG, BRISTOL MYERS SQUIBB [Suspect]
  6. FENTANYL CITRATE [Concomitant]
  7. DOCUSATE [Concomitant]
  8. PROMETHAZINE W/ CODEINE [Concomitant]
  9. SYMBICORT [Concomitant]
  10. ALBUTEROL [Concomitant]
  11. PREDNISONE [Concomitant]
  12. BENZONATATE [Concomitant]
  13. LORAZPAM [Concomitant]
  14. DURAGESIC-100 [Concomitant]
  15. PROTONIX [Concomitant]

REACTIONS (15)
  - ATELECTASIS [None]
  - BLOOD CULTURE POSITIVE [None]
  - COLLAPSE OF LUNG [None]
  - DISEASE PROGRESSION [None]
  - DYSPNOEA [None]
  - HAEMATOCRIT DECREASED [None]
  - HAEMOGLOBIN DECREASED [None]
  - LUNG ABSCESS [None]
  - LYMPHADENOPATHY [None]
  - METASTASES TO LUNG [None]
  - PLEURAL EFFUSION [None]
  - PNEUMONIA [None]
  - PULMONARY NECROSIS [None]
  - STAPHYLOCOCCAL INFECTION [None]
  - WHITE BLOOD CELL COUNT INCREASED [None]
